FAERS Safety Report 15543973 (Version 2)
Quarter: 2018Q4

REPORT INFORMATION
  Report Type: Spontaneous
  Country: FR (occurrence: FR)
  Receive Date: 20181023
  Receipt Date: 20181108
  Transmission Date: 20190205
  Serious: Yes (Hospitalization)
  Sender: FDA-Public Use
  Company Number: FR-PFIZER INC-2018375969

PATIENT
  Age: 68 Year
  Sex: Female
  Weight: 69 kg

DRUGS (29)
  1. DALACINE [Suspect]
     Active Substance: CLINDAMYCIN
     Indication: MEDICAL DEVICE SITE INFECTION
     Dosage: 1800 MG, 1X/DAY
     Route: 048
     Dates: start: 20170212, end: 20170301
  2. FUROSEMIDE. [Concomitant]
     Active Substance: FUROSEMIDE
     Dosage: 20 MG, 1X/DAY
     Route: 048
  3. OXYNORMORO [Concomitant]
     Active Substance: OXYCODONE HYDROCHLORIDE
     Dosage: 20 MG, AS NEEDED
     Route: 048
  4. PARACETAMOL [Concomitant]
     Active Substance: ACETAMINOPHEN
     Dosage: 4 G, 1X/DAY
     Route: 048
  5. ACUPAN [Concomitant]
     Active Substance: NEFOPAM HYDROCHLORIDE
     Dosage: 60 MG, 1X/DAY
     Route: 041
  6. MORPHINE CHLORHYDRATE [Concomitant]
     Active Substance: MORPHINE HYDROCHLORIDE
     Dosage: UNK
  7. FOSAVANCE [Concomitant]
     Active Substance: ALENDRONATE SODIUM\CHOLECALCIFEROL
     Dosage: 1 DF, WEEKLY
     Route: 048
  8. OROCAL D [Concomitant]
     Dosage: UNK
     Route: 048
  9. DIFFU K [Concomitant]
     Active Substance: POTASSIUM CHLORIDE
     Dosage: 6 DF, 1X/DAY
     Route: 048
  10. HIZENTRA [Concomitant]
     Active Substance: HUMAN IMMUNOGLOBULIN G
     Dosage: 6 G, WEEKLY
     Route: 058
  11. HYDROCORTISONE. [Concomitant]
     Active Substance: HYDROCORTISONE
     Indication: RHEUMATOID ARTHRITIS
     Dosage: 30 MG, 1X/DAY
     Route: 048
  12. SODIUM BICARBONATE. [Concomitant]
     Active Substance: SODIUM BICARBONATE
     Dosage: 3 DF, 1X/DAY
     Route: 048
  13. PANTOPRAZOLE [Concomitant]
     Active Substance: PANTOPRAZOLE
     Dosage: 40 MG, 1X/DAY
     Route: 048
  14. FLUOXETIN CT [Concomitant]
     Dosage: 40 MG, 1X/DAY
     Route: 048
  15. SPECIAFOLDINE [Concomitant]
     Active Substance: FOLIC ACID
     Dosage: 4 DF, WEEKLY
     Route: 048
  16. METOJECT [Suspect]
     Active Substance: METHOTREXATE SODIUM
     Indication: RHEUMATOID ARTHRITIS
     Dosage: 1 DF, WEEKLY
     Route: 058
     Dates: end: 201703
  17. DIFFU K [Concomitant]
     Active Substance: POTASSIUM CHLORIDE
     Dosage: 8 DF, 1X/DAY
     Route: 048
  18. ZYVOXID [Suspect]
     Active Substance: LINEZOLID
     Indication: MEDICAL DEVICE SITE INFECTION
     Dosage: 1200 MG, 1X/DAY
     Route: 048
     Dates: start: 20170213, end: 20170301
  19. ECONAZOLE. [Concomitant]
     Active Substance: ECONAZOLE NITRATE
     Dosage: UNK
     Route: 003
  20. PARACETAMOL [Concomitant]
     Active Substance: ACETAMINOPHEN
     Dosage: 3 G, 1X/DAY
     Route: 048
  21. PRIMPERAN [Concomitant]
     Active Substance: METOCLOPRAMIDE HYDROCHLORIDE
     Dosage: 10 MG, 1X/DAY
  22. ACUPAN [Concomitant]
     Active Substance: NEFOPAM HYDROCHLORIDE
     Dosage: 20 MG, AS NEEDED
     Route: 058
  23. CALCIDOSE VITAMINE D [Concomitant]
     Active Substance: CALCIUM\CHOLECALCIFEROL
     Dosage: 2 DF, 1X/DAY
     Route: 048
  24. SODIUM CHLORIDE AGUETTANT [Concomitant]
     Dosage: 500 ML, 1X/DAY
     Route: 041
  25. DAKTARIN [MICONAZOLE] [Concomitant]
     Dosage: 3 DF, 1X/DAY
     Route: 048
  26. FLUOXETINE [Concomitant]
     Active Substance: FLUOXETINE HYDROCHLORIDE
     Dosage: 40 MG, 1X/DAY
     Route: 048
  27. OXYNORMORO [Concomitant]
     Active Substance: OXYCODONE HYDROCHLORIDE
     Dosage: 40 MG, 1X/DAY
     Route: 048
  28. OXYCODONE [Concomitant]
     Active Substance: OXYCODONE
     Dosage: 120 MG, 1X/DAY
     Route: 048
  29. VANCOMYCINE SANDOZ [Concomitant]
     Active Substance: VANCOMYCIN
     Dosage: 2 G, DAILY
     Route: 041

REACTIONS (7)
  - Vomiting [Recovered/Resolved]
  - Nausea [Recovered/Resolved]
  - Erysipelas [Not Recovered/Not Resolved]
  - Diarrhoea [Recovered/Resolved]
  - C-reactive protein increased [Recovered/Resolved]
  - Pyrexia [Recovered/Resolved]
  - Acute abdomen [Recovered/Resolved]

NARRATIVE: CASE EVENT DATE: 20170301
